FAERS Safety Report 14289376 (Version 1)
Quarter: 2017Q4

REPORT INFORMATION
  Report Type: Spontaneous
  Country: US (occurrence: US)
  Receive Date: 20171214
  Receipt Date: 20171214
  Transmission Date: 20180321
  Serious: Yes (Hospitalization)
  Sender: FDA-Public Use
  Company Number: None

PATIENT
  Age: 42 Year
  Sex: Female
  Weight: 113.8 kg

DRUGS (1)
  1. XYZAL [Suspect]
     Active Substance: LEVOCETIRIZINE DIHYDROCHLORIDE
     Route: 048
     Dates: start: 20171211, end: 20171213

REACTIONS (5)
  - Hypersensitivity [None]
  - Erythema [None]
  - Pruritus [None]
  - Eye disorder [None]
  - Swelling [None]

NARRATIVE: CASE EVENT DATE: 20171211
